FAERS Safety Report 16181215 (Version 3)
Quarter: 2019Q2

REPORT INFORMATION
  Report Type: Spontaneous
  Country: GB (occurrence: GB)
  Receive Date: 20190410
  Receipt Date: 20190626
  Transmission Date: 20190711
  Serious: Yes (Other)
  Sender: FDA-Public Use
  Company Number: GB-009507513-1904GBR004091

PATIENT
  Age: 70 Year
  Sex: Male

DRUGS (3)
  1. ZICRON [Suspect]
     Active Substance: GLICLAZIDE
     Indication: DIABETES MELLITUS
     Dosage: 40 MILLIGRAM
     Route: 048
  2. JANUVIA [Suspect]
     Active Substance: SITAGLIPTIN PHOSPHATE
     Indication: DIABETES MELLITUS MANAGEMENT
     Dosage: 100 MG
     Route: 048
  3. JANUVIA [Suspect]
     Active Substance: SITAGLIPTIN PHOSPHATE
     Indication: DIABETES MELLITUS

REACTIONS (8)
  - Malabsorption [Unknown]
  - Therapy partial responder [Unknown]
  - Product solubility abnormal [Unknown]
  - Ileostomy [Unknown]
  - Blood glucose fluctuation [Unknown]
  - Diabetes mellitus inadequate control [Unknown]
  - Product residue present [Unknown]
  - Product quality issue [Unknown]

NARRATIVE: CASE EVENT DATE: 201902
